FAERS Safety Report 24294918 (Version 1)
Quarter: 2024Q3

REPORT INFORMATION
  Report Type: Spontaneous
  Country: US (occurrence: US)
  Receive Date: 20240907
  Receipt Date: 20240907
  Transmission Date: 20241016
  Serious: No
  Sender: AIMMUNE
  Company Number: US-AIMMUNE THERAPEUTICS, INC.-2024AIMT00881

PATIENT

DRUGS (4)
  1. ZENPEP [Suspect]
     Active Substance: PANCRELIPASE AMYLASE\PANCRELIPASE LIPASE\PANCRELIPASE PROTEASE
     Indication: Pancreatic failure
     Dosage: 40 000 USP UNITS
     Route: 048
     Dates: start: 20240528, end: 20240528
  2. ZENPEP [Suspect]
     Active Substance: PANCRELIPASE AMYLASE\PANCRELIPASE LIPASE\PANCRELIPASE PROTEASE
     Dosage: 40 000 USP UNITS, ONCE, LAST DOSE PRIOR EVENT
     Route: 048
     Dates: start: 20240528, end: 20240528
  3. PEPCID AC [Concomitant]
     Active Substance: FAMOTIDINE
     Indication: Gastrooesophageal reflux disease
     Dosage: ONCE A WEEK, AS NEEDED
     Dates: start: 2023
  4. BETAINE HCL [Concomitant]
     Indication: Enzyme supplementation
     Dosage: 1-2 PILLS AS NEEDED
     Dates: start: 202405, end: 202405

REACTIONS (1)
  - Feeling hot [Recovered/Resolved]

NARRATIVE: CASE EVENT DATE: 20240528
